FAERS Safety Report 7153808-6 (Version None)
Quarter: 2010Q4

REPORT INFORMATION
  Report Type: 
  Country: None (occurrence: None)
  Receive Date: 20101213
  Receipt Date: 20100208
  Transmission Date: 20110411
  Serious: No
  Sender: FDA-Public Use
  Company Number: US-ABBOTT-10P-163-0624794-00

PATIENT
  Sex: Male
  Weight: 115.32 kg

DRUGS (2)
  1. MERIDIA [Suspect]
     Indication: WEIGHT DECREASED
     Route: 048
     Dates: start: 20100121, end: 20100124
  2. ASPIRIN [Concomitant]
     Indication: HEADACHE

REACTIONS (2)
  - CHEST PAIN [None]
  - NAUSEA [None]
